FAERS Safety Report 9077193 (Version 1)
Quarter: 2013Q1

REPORT INFORMATION
  Report Type: Report from Study
  Country: US (occurrence: US)
  Receive Date: 20130129
  Receipt Date: 20130129
  Transmission Date: 20140127
  Serious: No
  Sender: FDA-Public Use
  Company Number: US-ABBOTT-12P-163-0940025-00

PATIENT
  Age: 73 Year
  Sex: Female

DRUGS (12)
  1. HUMIRA 40 MG/0.8 ML PEN [Suspect]
     Indication: CROHN^S DISEASE
     Dates: start: 20120410
  2. AMITRIPTYLINE [Concomitant]
     Indication: CROHN^S DISEASE
     Dosage: 25MG DAILY
  3. OSCAL [Concomitant]
     Indication: PRODUCT USED FOR UNKNOWN INDICATION
     Dosage: 1000MG DAILY
  4. CRESTOR [Concomitant]
     Indication: BLOOD CHOLESTEROL INCREASED
     Dosage: 1 PILL DAILY
  5. FOLIC ACID [Concomitant]
     Indication: PRODUCT USED FOR UNKNOWN INDICATION
     Dosage: 2MG DAILY
  6. CODEINE [Concomitant]
     Indication: DIARRHOEA
     Dosage: 3 TO 4 PILLS PER DAY
  7. AVAPRO [Concomitant]
     Indication: BLOOD PRESSURE
     Dosage: 300MG DAILY
  8. METOPROLOL [Concomitant]
     Indication: BLOOD PRESSURE
     Dosage: 100MG DAILY
  9. LISINOPRIL [Concomitant]
     Indication: BLOOD PRESSURE
     Dosage: 40MG DAILY
  10. PENTASA [Concomitant]
     Indication: CROHN^S DISEASE
     Dosage: 2 TABS DAILY
  11. FAMOTIDINE [Concomitant]
     Indication: GASTRIC DISORDER
     Dosage: 40MG NIGHTLY
  12. B12 [Concomitant]
     Indication: PRODUCT USED FOR UNKNOWN INDICATION
     Dosage: MONTHLY

REACTIONS (1)
  - Diarrhoea [Not Recovered/Not Resolved]
